FAERS Safety Report 10648967 (Version 1)
Quarter: 2014Q4

REPORT INFORMATION
  Report Type: Report from Study
  Country: US (occurrence: US)
  Receive Date: 20141212
  Receipt Date: 20141212
  Transmission Date: 20150529
  Serious: Yes (Death)
  Sender: FDA-Public Use
  Company Number: US-SA-2014SA172118

PATIENT

DRUGS (2)
  1. IPILIMUMAB [Suspect]
     Active Substance: IPILIMUMAB
     Indication: METASTATIC MALIGNANT MELANOMA
     Dosage: FREQUENCY- EVERY 3 WEEKS INTRAVENOUSLY FOR 4 DOSES , THEN EVERY 12 WEKS PLUS SARGRAMOSTIM
     Route: 042
  2. SARGRAMOSTIM [Suspect]
     Active Substance: SARGRAMOSTIM
     Indication: METASTATIC MALIGNANT MELANOMA
     Route: 058

REACTIONS (1)
  - Large intestine perforation [Fatal]
